FAERS Safety Report 8345842-5 (Version None)
Quarter: 2012Q2

REPORT INFORMATION
  Report Type: 
  Country: None (occurrence: None)
  Receive Date: 20120509
  Receipt Date: 20120427
  Transmission Date: 20120825
  Serious: Yes (Hospitalization)
  Sender: FDA-Public Use
  Company Number: US-BIOGENIDEC-178747

PATIENT
  Age: 51 Year
  Sex: Female

DRUGS (5)
  1. AVONEX [Suspect]
     Indication: MULTIPLE SCLEROSIS
     Route: 030
     Dates: start: 20010401, end: 20030613
  2. PAXIL [Concomitant]
     Indication: DEPRESSION
  3. COMBIVENT [Concomitant]
     Indication: ASTHMA
     Dates: start: 20030301
  4. PREMARIN [Concomitant]
     Indication: HORMONE REPLACEMENT THERAPY
  5. ADVAIR DISKUS 100/50 [Concomitant]
     Indication: ASTHMA
     Dates: start: 20030301

REACTIONS (3)
  - PYREXIA [None]
  - DRUG HYPERSENSITIVITY [None]
  - LYMPHADENOPATHY [None]
